FAERS Safety Report 9728299 (Version 1)
Quarter: 2013Q4

REPORT INFORMATION
  Report Type: Spontaneous
  Country: US (occurrence: None)
  Receive Date: 20131203
  Receipt Date: 20131203
  Transmission Date: 20140711
  Serious: Yes (Other)
  Sender: FDA-Public Use
  Company Number: None

PATIENT
  Age: 13 Year
  Sex: Female
  Weight: 62.6 kg

DRUGS (1)
  1. GENERESS FE [Suspect]
     Indication: ENDOMETRIOSIS
     Dosage: ONE TAB, DAILY, PO
     Route: 048
     Dates: start: 20131108, end: 20131118

REACTIONS (2)
  - Aggression [None]
  - Paranoia [None]
